FAERS Safety Report 6790893-5 (Version None)
Quarter: 2010Q2

REPORT INFORMATION
  Report Type: 
  Country: None (occurrence: None)
  Receive Date: 20100624
  Receipt Date: 20100615
  Transmission Date: 20101027
  Serious: Yes (Life-Threatening)
  Sender: FDA-Public Use
  Company Number: B0659074A

PATIENT
  Sex: Female
  Weight: 56 kg

DRUGS (5)
  1. AUGMENTIN '125' [Suspect]
     Indication: URINARY TRACT INFECTION
     Route: 065
     Dates: start: 20100525, end: 20100527
  2. RANITIDINE [Concomitant]
     Indication: ILL-DEFINED DISORDER
     Dates: start: 20070101
  3. NEXIUM [Concomitant]
     Indication: ILL-DEFINED DISORDER
     Route: 065
     Dates: start: 20070101
  4. YASMIN [Concomitant]
     Indication: CONTRACEPTION
     Route: 048
     Dates: start: 20060101
  5. AUGMENTIN '125' [Concomitant]

REACTIONS (5)
  - ANAPHYLACTIC REACTION [None]
  - DERMATITIS CONTACT [None]
  - DIARRHOEA [None]
  - NAUSEA [None]
  - RASH [None]
